FAERS Safety Report 5388664-X (Version None)
Quarter: 2007Q3

REPORT INFORMATION
  Report Type: 
  Country: None (occurrence: None)
  Receive Date: 20070712
  Receipt Date: 20070702
  Transmission Date: 20080115
  Serious: Yes (Life-Threatening, Hospitalization, Other)
  Sender: FDA-Public Use
  Company Number: 100#08#2007-02446

PATIENT
  Age: 66 Year
  Sex: Female

DRUGS (2)
  1. METHYLPREDNISOLONE [Suspect]
     Indication: ENDOCRINE OPHTHALMOPATHY
     Dosage: WEEKLY CYCLES OF IV INTRAVENOUS
     Route: 042
  2. LEVOTHYROXINE SODIUM [Concomitant]

REACTIONS (8)
  - ACUTE MYOCARDIAL INFARCTION [None]
  - AORTIC VALVE DISEASE [None]
  - CORONARY ARTERY OCCLUSION [None]
  - HYPERTENSION [None]
  - LEFT ATRIAL DILATATION [None]
  - MITRAL VALVE INCOMPETENCE [None]
  - NO THERAPEUTIC RESPONSE [None]
  - TRICUSPID VALVE INCOMPETENCE [None]
